FAERS Safety Report 6877621-X (Version None)
Quarter: 2010Q3

REPORT INFORMATION
  Report Type: 
  Country: None (occurrence: None)
  Receive Date: 20100727
  Receipt Date: 20100412
  Transmission Date: 20110219
  Serious: No
  Sender: FDA-Public Use
  Company Number: US-ABBOTT-10P-163-0638937-00

PATIENT
  Sex: Female
  Weight: 65.83 kg

DRUGS (6)
  1. SYNTHROID [Suspect]
     Indication: BLOOD THYROID STIMULATING HORMONE INCREASED
     Dates: start: 20090801
  2. SYNTHROID [Suspect]
     Indication: HYPOTHYROIDISM
  3. TOPROL-XL [Concomitant]
     Indication: HYPERTENSION
     Dosage: EVERY MORNING
  4. TOPROL-XL [Concomitant]
     Dosage: EVERY NIGHT
  5. CALCIUM [Concomitant]
     Indication: OSTEOPOROSIS
  6. CENTRUM SILVER [Concomitant]
     Indication: PRODUCT USED FOR UNKNOWN INDICATION

REACTIONS (2)
  - ARTHRALGIA [None]
  - PAIN IN EXTREMITY [None]
